FAERS Safety Report 11061879 (Version 1)
Quarter: 2015Q2

REPORT INFORMATION
  Report Type: Spontaneous
  Country: US (occurrence: US)
  Receive Date: 20150424
  Receipt Date: 20150424
  Transmission Date: 20150821
  Serious: No
  Sender: FDA-Public Use
  Company Number: US-BIOGENIDEC-2015BI053868

PATIENT
  Age: 47 Year
  Sex: Female

DRUGS (8)
  1. QUETIAPINE FUMARATE. [Concomitant]
     Active Substance: QUETIAPINE FUMARATE
  2. MODAFINIL. [Concomitant]
     Active Substance: MODAFINIL
  3. RANITIDINE HCL [Concomitant]
     Active Substance: RANITIDINE HYDROCHLORIDE
  4. VOLTAREN [Concomitant]
     Active Substance: DICLOFENAC SODIUM
  5. ALPHAGAN P [Concomitant]
     Active Substance: BRIMONIDINE TARTRATE
  6. CLONAZEPAM. [Concomitant]
     Active Substance: CLONAZEPAM
  7. VESICARE [Concomitant]
     Active Substance: SOLIFENACIN SUCCINATE
  8. TECFIDERA [Suspect]
     Active Substance: DIMETHYL FUMARATE
     Indication: MULTIPLE SCLEROSIS
     Route: 048

REACTIONS (1)
  - Constipation [Unknown]
